FAERS Safety Report 6634303-7 (Version None)
Quarter: 2010Q1

REPORT INFORMATION
  Report Type: 
  Country: None (occurrence: None)
  Receive Date: 20100315
  Receipt Date: 20100212
  Transmission Date: 20100710
  Serious: No
  Sender: FDA-Public Use
  Company Number: US-BAYER-201012002BCC

PATIENT
  Age: 54 Year
  Sex: Female
  Weight: 136 kg

DRUGS (6)
  1. ALEVE (CAPLET) [Suspect]
     Indication: ARTHRALGIA
     Dosage: TOTAL DAILY DOSE: 220 MG  UNIT DOSE: 220 MG
     Route: 048
     Dates: start: 20091228, end: 20100208
  2. CLARITIN [Concomitant]
     Route: 065
  3. FISH OIL [Concomitant]
     Route: 065
  4. CENTRUM MULTI-VITAMIN [Concomitant]
     Route: 065
  5. SAINT JOSEPH'S 81MG ENTERIC ASPIRIN [Concomitant]
     Route: 065
  6. AMBIEN [Concomitant]
     Route: 065

REACTIONS (3)
  - ABDOMINAL DISCOMFORT [None]
  - ABDOMINAL PAIN UPPER [None]
  - ARTHRALGIA [None]
